FAERS Safety Report 24007504 (Version 1)
Quarter: 2024Q2

REPORT INFORMATION
  Report Type: Spontaneous
  Country: FR (occurrence: FR)
  Receive Date: 20240625
  Receipt Date: 20240625
  Transmission Date: 20240716
  Serious: Yes (Other)
  Sender: FDA-Public Use
  Company Number: FR-AMGEN-FRASP2024120118

PATIENT
  Age: 54 Year
  Sex: Male

DRUGS (1)
  1. REPATHA [Suspect]
     Active Substance: EVOLOCUMAB
     Indication: Product used for unknown indication
     Dosage: 140 MILLIGRAM, Q2WK (EVERY 15 DAYS)
     Route: 065
     Dates: start: 2022

REACTIONS (3)
  - Groin abscess [Unknown]
  - Oral herpes [Unknown]
  - Impetigo [Unknown]

NARRATIVE: CASE EVENT DATE: 20240601
